FAERS Safety Report 24109634 (Version 1)
Quarter: 2024Q3

REPORT INFORMATION
  Report Type: Spontaneous
  Country: US (occurrence: None)
  Receive Date: 20240717
  Receipt Date: 20240717
  Transmission Date: 20241017
  Serious: Yes (Hospitalization)
  Sender: Public
  Company Number: None

PATIENT
  Age: 83 Year
  Sex: Male
  Weight: 80.1 kg

DRUGS (3)
  1. DARATUMUMAB [Suspect]
     Active Substance: DARATUMUMAB
     Dates: end: 20240510
  2. DEXAMETHASONE [Suspect]
     Active Substance: DEXAMETHASONE
     Dates: end: 20240601
  3. LENALIDOMIDE [Suspect]
     Active Substance: LENALIDOMIDE
     Dates: end: 20240531

REACTIONS (4)
  - Pulmonary embolism [None]
  - Aortic stenosis [None]
  - Blood pressure increased [None]
  - Troponin increased [None]

NARRATIVE: CASE EVENT DATE: 20240713
